FAERS Safety Report 11537302 (Version 3)
Quarter: 2017Q1

REPORT INFORMATION
  Report Type: Spontaneous
  Country: FR (occurrence: FR)
  Receive Date: 20150922
  Receipt Date: 20170213
  Transmission Date: 20170428
  Serious: Yes (Life-Threatening, Hospitalization)
  Sender: FDA-Public Use
  Company Number: FR-TEVA-594737ISR

PATIENT
  Age: 75 Year
  Sex: Male

DRUGS (5)
  1. ICLUSIG [Suspect]
     Active Substance: PONATINIB
     Indication: ACUTE LYMPHOCYTIC LEUKAEMIA
     Dosage: 45 MILLIGRAM DAILY; REMEDIAL COURSE OF CHEMOTHERAPY
     Route: 048
     Dates: start: 20150811, end: 20150817
  2. ICLUSIG [Suspect]
     Active Substance: PONATINIB
     Dates: start: 20150827
  3. DEXAMETHASONE. [Concomitant]
     Active Substance: DEXAMETHASONE
     Dates: start: 20150811
  4. VINCRISTINE TEVA 0.1 PERCENT (1MG/1 ML) [Suspect]
     Active Substance: VINCRISTINE
     Indication: ACUTE LYMPHOCYTIC LEUKAEMIA
     Dosage: 1 MILLIGRAM DAILY; REMEDIAL COURSE OF CHEMOTHERAPY: AT DAY 1, DAY 8, DAY 15 AND DAY 22
     Route: 041
     Dates: start: 20150811, end: 20150811
  5. HEPARIN SODIUM. [Concomitant]
     Active Substance: HEPARIN SODIUM

REACTIONS (2)
  - Posterior reversible encephalopathy syndrome [Recovered/Resolved]
  - Bone marrow failure [Unknown]

NARRATIVE: CASE EVENT DATE: 20150817
